FAERS Safety Report 6937070-2 (Version None)
Quarter: 2010Q3

REPORT INFORMATION
  Report Type: 
  Country: None (occurrence: None)
  Receive Date: 20100823
  Receipt Date: 20100815
  Transmission Date: 20110219
  Serious: Yes (Life-Threatening, Hospitalization)
  Sender: FDA-Public Use
  Company Number: PHHO2010DE08420

PATIENT
  Sex: Male

DRUGS (4)
  1. SANDOSTATIN LAR [Suspect]
     Indication: THYMOMA
     Dosage: 30MG EVERY 2 WEEKS
     Route: 030
     Dates: start: 20100115, end: 20100512
  2. CHEMOTHERAPEUTICS NOS [Suspect]
  3. PREDNISOLONE [Suspect]
     Dosage: 30 MG, QD
     Route: 048
     Dates: start: 20100115
  4. FRAXIPARIN [Concomitant]

REACTIONS (23)
  - ABDOMINAL COMPARTMENT SYNDROME [None]
  - ANAEMIA [None]
  - ARM AMPUTATION [None]
  - BACTERIAL INFECTION [None]
  - BLISTER [None]
  - CARDIAC ARREST [None]
  - CELLULITIS [None]
  - COMPARTMENT SYNDROME [None]
  - HEPATIC FAILURE [None]
  - ILEOSTOMY [None]
  - ILEUS PARALYTIC [None]
  - LIMB OPERATION [None]
  - MALIGNANT NEOPLASM PROGRESSION [None]
  - MULTI-ORGAN FAILURE [None]
  - NECROTISING FASCIITIS [None]
  - NEUROPATHY PERIPHERAL [None]
  - OEDEMA PERIPHERAL [None]
  - RENAL FAILURE [None]
  - RESPIRATORY FAILURE [None]
  - SEPSIS [None]
  - SEPTIC SHOCK [None]
  - TACHYCARDIA [None]
  - THROMBOSIS [None]
